FAERS Safety Report 17730837 (Version 1)
Quarter: 2020Q2

REPORT INFORMATION
  Report Type: Spontaneous
  Country: US (occurrence: US)
  Receive Date: 20200430
  Receipt Date: 20200430
  Transmission Date: 20200714
  Serious: No
  Sender: FDA-Public Use
  Company Number: US-EISAI MEDICAL RESEARCH-EC-2020-073760

PATIENT
  Age: 75 Year
  Sex: Female
  Weight: 51 kg

DRUGS (2)
  1. LENVIMA [Suspect]
     Active Substance: LENVATINIB
     Indication: THYROID CANCER METASTATIC
     Route: 048
     Dates: start: 201905
  2. KEYTRUDA [Concomitant]
     Active Substance: PEMBROLIZUMAB
     Indication: THYROID CANCER METASTATIC
     Route: 042
     Dates: start: 20200109

REACTIONS (2)
  - Nausea [Recovered/Resolved]
  - Taste disorder [Recovered/Resolved]

NARRATIVE: CASE EVENT DATE: 202001
